FAERS Safety Report 5317137-5 (Version None)
Quarter: 2007Q2

REPORT INFORMATION
  Report Type: 
  Country: None (occurrence: None)
  Receive Date: 20070504
  Receipt Date: 20070423
  Transmission Date: 20071010
  Serious: Yes (Death)
  Sender: FDA-Public Use
  Company Number: IT-PFIZER INC-2007023211

PATIENT
  Sex: Female

DRUGS (1)
  1. FARMORUBICIN RD [Suspect]
     Indication: BREAST CANCER
     Route: 042
     Dates: start: 20051115, end: 20060228

REACTIONS (2)
  - CARDIOMEGALY [None]
  - CONGESTIVE CARDIOMYOPATHY [None]
